FAERS Safety Report 15269777 (Version 1)
Quarter: 2018Q3

REPORT INFORMATION
  Report Type: Spontaneous
  Country: US (occurrence: US)
  Receive Date: 20180726
  Receipt Date: 20180726
  Transmission Date: 20181010
  Serious: No
  Sender: FDA-Public Use
  Company Number: None

PATIENT
  Age: 33 Year
  Sex: Female

DRUGS (1)
  1. SOMAVERT [Suspect]
     Active Substance: PEGVISOMANT
     Indication: ACROMEGALY

REACTIONS (4)
  - Wrong technique in product usage process [None]
  - Abdominal pain [None]
  - Disturbance in attention [None]
  - Muscle spasms [None]

NARRATIVE: CASE EVENT DATE: 20180726
